FAERS Safety Report 4864086-2 (Version None)
Quarter: 2005Q4

REPORT INFORMATION
  Report Type: 
  Country: None (occurrence: None)
  Receive Date: 20051219
  Receipt Date: 20051206
  Transmission Date: 20060501
  Serious: Yes (Other)
  Sender: FDA-Public Use
  Company Number: 2005165951

PATIENT
  Age: 57 Year
  Sex: Female

DRUGS (3)
  1. IRINOTECAN HCL [Suspect]
     Indication: COLON CANCER
     Dosage: 12 CYCLES
  2. FLUOROURACIL [Suspect]
     Indication: COLON CANCER
     Dosage: 12 CYCLES
  3. LEUCOVORIN CALCIUM [Suspect]
     Indication: COLON CANCER
     Dosage: 12 CYCLES

REACTIONS (3)
  - ANAEMIA [None]
  - PYREXIA [None]
  - RHEUMATOID ARTHRITIS [None]
